FAERS Safety Report 22001301 (Version 1)
Quarter: 2023Q1

REPORT INFORMATION
  Report Type: Spontaneous
  Country: US (occurrence: US)
  Receive Date: 20230216
  Receipt Date: 20230216
  Transmission Date: 20230418
  Serious: No
  Sender: FDA-Public Use
  Company Number: US-002147023-NVSC2023US034925

PATIENT
  Age: 100 Year
  Sex: Female
  Weight: 90.72 kg

DRUGS (1)
  1. LEQVIO [Suspect]
     Active Substance: INCLISIRAN SODIUM
     Indication: Low density lipoprotein
     Dosage: 300 MG, QMO
     Route: 058
     Dates: start: 20221001

REACTIONS (1)
  - Vertigo [Unknown]
